FAERS Safety Report 9507704 (Version 2)
Quarter: 2013Q4

REPORT INFORMATION
  Report Type: Spontaneous
  Country: US (occurrence: US)
  Receive Date: 20130909
  Receipt Date: 20131114
  Transmission Date: 20140711
  Serious: Yes (Other)
  Sender: FDA-Public Use
  Company Number: US-BAYER-2013-108067

PATIENT
  Age: 33 Year
  Sex: Female
  Weight: 124.72 kg

DRUGS (6)
  1. MIRENA [Suspect]
     Indication: CONTRACEPTION
     Dosage: 20 MCG/24HR, CONT
     Route: 015
     Dates: start: 20120725, end: 20130909
  2. ATIVAN [Concomitant]
     Dosage: 1 MG, BID
     Route: 048
     Dates: start: 20130815
  3. LORTAB [Concomitant]
     Indication: PAIN
     Dosage: UNK UNK, PRN
     Route: 048
     Dates: start: 20130815
  4. PROVERA [Concomitant]
     Dosage: 10 MG, QD
     Route: 048
  5. VITAMIN D2 [Concomitant]
     Route: 048
  6. LABETALOL [Concomitant]
     Route: 048

REACTIONS (8)
  - Device expulsion [None]
  - Pelvic pain [None]
  - Abdominal pain [None]
  - Vaginal haemorrhage [None]
  - Amenorrhoea [None]
  - Dyspareunia [None]
  - Hypomenorrhoea [None]
  - Menstruation irregular [None]
